FAERS Safety Report 23688038 (Version 1)
Quarter: 2024Q1

REPORT INFORMATION
  Report Type: Spontaneous
  Country: GB (occurrence: GB)
  Receive Date: 20240329
  Receipt Date: 20240329
  Transmission Date: 20240410
  Serious: Yes (Other)
  Sender: FDA-Public Use
  Company Number: GB-SUN PHARMACEUTICAL INDUSTRIES LTD-2024RR-433840

PATIENT
  Age: 68 Year
  Sex: Female
  Weight: 64.6 kg

DRUGS (2)
  1. ATORVASTATIN [Suspect]
     Active Substance: ATORVASTATIN
     Indication: Product used for unknown indication
     Dosage: EVERY NIGHT
     Route: 065
     Dates: start: 20231212, end: 20231215
  2. SPIKEVAX (ANDUSOMERAN) [Concomitant]
     Active Substance: ANDUSOMERAN
     Indication: Product used for unknown indication
     Dosage: 0.5 MILLILITER
     Route: 030
     Dates: start: 20231022, end: 20231022

REACTIONS (5)
  - Oropharyngeal blistering [Recovering/Resolving]
  - Oropharyngeal pain [Unknown]
  - Myalgia [Unknown]
  - Fatigue [Unknown]
  - Pharyngeal swelling [Unknown]

NARRATIVE: CASE EVENT DATE: 20231213
